FAERS Safety Report 7747473-4 (Version None)
Quarter: 2011Q3

REPORT INFORMATION
  Report Type: 
  Country: None (occurrence: None)
  Receive Date: 20110913
  Receipt Date: 20110907
  Transmission Date: 20111222
  Serious: Yes (Other)
  Sender: FDA-Public Use
  Company Number: US-PFIZER INC-2011135651

PATIENT
  Sex: Female
  Weight: 60.771 kg

DRUGS (8)
  1. XALATAN [Suspect]
     Indication: OCULAR HYPERTENSION
  2. TIMOLOL [Concomitant]
     Dosage: 0.5 %, UNK
     Dates: start: 20110818
  3. NEXIUM [Concomitant]
     Dosage: UNK
  4. XALATAN [Suspect]
     Indication: INTRAOCULAR PRESSURE TEST ABNORMAL
     Dosage: ONE DROP IN EACH EYE AT BEDTIME
     Route: 047
     Dates: start: 20080923, end: 20110818
  5. PREVACID [Concomitant]
     Dosage: UNK
  6. NEURONTIN [Concomitant]
     Dosage: UNK
  7. DIOVAN [Concomitant]
     Dosage: UNK
  8. CRESTOR [Concomitant]
     Dosage: UNK

REACTIONS (10)
  - CARDIAC DISORDER [None]
  - VIRAL INFECTION [None]
  - EYE PRURITUS [None]
  - LACRIMATION INCREASED [None]
  - ANGIOPATHY [None]
  - BLOOD CHOLESTEROL INCREASED [None]
  - OCULAR HYPERAEMIA [None]
  - DRUG INEFFECTIVE [None]
  - EYE IRRITATION [None]
  - HYPERSENSITIVITY [None]
